FAERS Safety Report 13904462 (Version 2)
Quarter: 2017Q3

REPORT INFORMATION
  Report Type: Report from Study
  Country: PL (occurrence: PL)
  Receive Date: 20170825
  Receipt Date: 20170921
  Transmission Date: 20171127
  Serious: Yes (Death, Life-Threatening, Hospitalization, Other)
  Sender: FDA-Public Use
  Company Number: PL-SUN PHARMACEUTICAL INDUSTRIES LTD-2017R1-148509

PATIENT
  Age: 49 Year
  Sex: Female

DRUGS (5)
  1. CARBOPLATIN. [Suspect]
     Active Substance: CARBOPLATIN
     Indication: OVARIAN EPITHELIAL CANCER
     Dosage: 400 MG/M2, 6 CYCLES (PER CYCLE LASTING 3 H WITH 3 WEEKS BREAK BETWEEN CHEMOTHERAPY CYCLES)
     Route: 042
     Dates: start: 201304
  2. PACLITAXEL. [Suspect]
     Active Substance: PACLITAXEL
     Indication: OVARIAN EPITHELIAL CANCER
     Dosage: 175 MG/M2, 3 CYCLES (PER CYCLE LASTING 3 H WITH 3 WEEKS BREAK BETWEEN CHEMOTHERAPY CYCLES)
     Route: 042
     Dates: start: 201505
  3. CARBOPLATIN. [Suspect]
     Active Substance: CARBOPLATIN
     Indication: OVARIAN EPITHELIAL CANCER
     Dosage: 400 MG/M2, 3 CYCLES (PER CYCLE LASTING 3 H WITH 3 WEEKS BREAK BETWEEN CHEMOTHERAPY CYCLES)
     Route: 042
     Dates: start: 201505
  4. PACLITAXEL. [Suspect]
     Active Substance: PACLITAXEL
     Indication: OVARIAN EPITHELIAL CANCER
     Dosage: 175 MG/M2, 6 CYCLES (PER CYCLE LASTING 3 H WITH 3 WEEKS BREAK BETWEEN CHEMOTHERAPY CYCLES)
     Route: 042
     Dates: start: 201304
  5. CAELYX [Suspect]
     Active Substance: DOXORUBICIN HYDROCHLORIDE
     Indication: OVARIAN EPITHELIAL CANCER
     Dosage: 50 MG/M2, 6 CYCLES (PER CYCLE, WITH 3 WEEKS BETWEEN CHEMOTHERAPY CYCLES)
     Route: 065
     Dates: start: 201412

REACTIONS (1)
  - Drug ineffective [Unknown]

NARRATIVE: CASE EVENT DATE: 2015
